FAERS Safety Report 9203622 (Version 2)
Quarter: 2013Q3

REPORT INFORMATION
  Report Type: Spontaneous
  Country: DK (occurrence: DK)
  Receive Date: 20130402
  Receipt Date: 20130815
  Transmission Date: 20140515
  Serious: Yes (Death)
  Sender: FDA-Public Use
  Company Number: DK-UCBSA-081614

PATIENT
  Age: 72 Year
  Sex: Male

DRUGS (3)
  1. CIMZIA [Suspect]
     Indication: RHEUMATOID ARTHRITIS
     Dosage: DOSE: 400 MG
     Dates: start: 20130116
  2. PREDNISOLONE [Concomitant]
     Indication: RHEUMATOID ARTHRITIS
     Dates: start: 20121214
  3. LEFLUNOMID [Concomitant]
     Indication: RHEUMATOID ARTHRITIS
     Dates: start: 20121022

REACTIONS (2)
  - Pneumonia [Fatal]
  - Respiratory failure [Fatal]
